FAERS Safety Report 10215760 (Version 1)
Quarter: 2014Q2

REPORT INFORMATION
  Report Type: Spontaneous
  Country: US (occurrence: None)
  Receive Date: 20140602
  Receipt Date: 20140602
  Transmission Date: 20141212
  Serious: Yes (Hospitalization)
  Sender: FDA-Public Use
  Company Number: LIT-14-0023-W

PATIENT
  Age: 17 Year
  Sex: Female

DRUGS (2)
  1. BUPROPION [Suspect]
     Indication: MAJOR DEPRESSION
     Route: 048
  2. ORAL IRON SUPPLEMMENT [Concomitant]

REACTIONS (7)
  - Overdose [None]
  - Suicide attempt [None]
  - Generalised tonic-clonic seizure [None]
  - Hypokalaemia [None]
  - Hypocalcaemia [None]
  - Hypoglycaemia [None]
  - Metabolic acidosis [None]
